FAERS Safety Report 17188110 (Version 1)
Quarter: 2019Q4

REPORT INFORMATION
  Report Type: Spontaneous
  Country: HU (occurrence: HU)
  Receive Date: 20191221
  Receipt Date: 20191221
  Transmission Date: 20200122
  Serious: Yes (Death, Hospitalization)
  Sender: FDA-Public Use
  Company Number: HU-009507513-1912HUN008104

PATIENT
  Age: 66 Year
  Sex: Female

DRUGS (6)
  1. CONCOR [Concomitant]
     Active Substance: BISOPROLOL FUMARATE
     Dosage: 1X2.5 MILLIGRAM, DAILY
  2. NUTRIDRINK MAX [Concomitant]
     Dosage: 1X1 PACK
  3. NOACID (PANTOPRAZOLE SODIUM) [Concomitant]
     Dosage: 1X40 MILLIGRAM
  4. LEGALON [Concomitant]
     Active Substance: DIETARY SUPPLEMENT\HERBALS\MILK THISTLE
     Dosage: 2X140 MILLIGRAM, DAILY
  5. KEYTRUDA [Suspect]
     Active Substance: PEMBROLIZUMAB
     Indication: LUNG ADENOCARCINOMA
     Dosage: 200 MILLIGRAM, EVERY THIRD WEEKS
     Dates: start: 20191014, end: 20191104
  6. SOLU-MEDROL [Concomitant]
     Active Substance: METHYLPREDNISOLONE SODIUM SUCCINATE
     Dosage: 1X180 MILLIGRAM

REACTIONS (4)
  - Dehydration [Fatal]
  - Jaundice [Fatal]
  - Hypotonia [Fatal]
  - Head injury [Unknown]

NARRATIVE: CASE EVENT DATE: 20191116
